FAERS Safety Report 7283005-5 (Version None)
Quarter: 2011Q1

REPORT INFORMATION
  Report Type: 
  Country: None (occurrence: None)
  Receive Date: 20110209
  Receipt Date: 20110202
  Transmission Date: 20110831
  Serious: Yes (Hospitalization)
  Sender: FDA-Public Use
  Company Number: CA-GENZYME-FLUD-1000323

PATIENT
  Sex: Male

DRUGS (37)
  1. TAZOCIN [Concomitant]
     Indication: FEBRILE NEUTROPENIA
     Dosage: 4.5 G, TID
     Route: 042
     Dates: start: 20101012, end: 20101017
  2. CYCLOSPORINE [Concomitant]
     Dosage: 90 MG, UNK
     Route: 042
     Dates: start: 20101028, end: 20101030
  3. LISINOPRIL [Concomitant]
     Indication: BLOOD PRESSURE
     Dosage: 5 MG, QD
     Route: 048
     Dates: start: 20100927, end: 20101017
  4. CIPROFLOXACIN [Concomitant]
     Indication: INFECTION PROPHYLAXIS
     Dosage: 500 MG, QD
     Route: 048
     Dates: start: 20100816, end: 20101025
  5. NORVASC [Concomitant]
     Indication: HYPERTENSION
     Dosage: 5 G, QD
     Route: 048
     Dates: start: 20100926, end: 20100930
  6. METOPROLOL [Concomitant]
     Indication: BLOOD PRESSURE
     Dosage: 5 MG, TID
     Route: 048
     Dates: start: 20101013, end: 20101016
  7. RANITIDINE [Concomitant]
     Indication: PROPHYLAXIS
     Dosage: 150 MG, BID
     Route: 048
     Dates: start: 20101016, end: 20101019
  8. CYCLOSPORINE [Concomitant]
     Indication: GRAFT VERSUS HOST DISEASE
     Dosage: 150 MG, BID
     Route: 048
  9. ATIVAN [Concomitant]
     Indication: PRODUCT USED FOR UNKNOWN INDICATION
     Dosage: 1-2 MG, QHS, PRN
     Route: 048
  10. SEPTRA [Concomitant]
     Indication: PRODUCT USED FOR UNKNOWN INDICATION
     Dosage: 2 UNK, TIW ON MONDAY, WEDNESDAY AND FRIDAY
     Route: 048
  11. BENADRYL [Concomitant]
     Indication: ALLERGY PROPHYLAXIS
     Dosage: 50 MG, TID
     Route: 042
     Dates: start: 20101004, end: 20101013
  12. CYCLOSPORINE [Concomitant]
     Dosage: 280 MG, UNK
     Route: 042
     Dates: start: 20101001, end: 20101010
  13. FLUDARA [Suspect]
     Indication: STEM CELL TRANSPLANT
     Dosage: 102 MG, UNK
     Route: 042
     Dates: start: 20100927, end: 20100930
  14. MGSO4 AND KCL [Concomitant]
     Indication: PROPHYLAXIS
     Dosage: 5 G, PRN
     Route: 042
     Dates: start: 20101006, end: 20101030
  15. PLERIXAFOR [Suspect]
     Indication: ACUTE MYELOID LEUKAEMIA
     Dosage: 23 MG, UNK
     Route: 058
     Dates: start: 20100927, end: 20100927
  16. PHENYTOIN [Concomitant]
     Indication: PROPHYLAXIS OF NAUSEA AND VOMITING
     Dosage: 100 MG, TID
     Route: 048
     Dates: start: 20100926, end: 20101003
  17. IMOVANE [Concomitant]
     Indication: INSOMNIA
     Dosage: 7.5 MG, PRN
     Dates: start: 20101004, end: 20101023
  18. MAXERAN [Concomitant]
     Indication: PROPHYLAXIS OF NAUSEA AND VOMITING
     Dosage: 30 MG, UNK
     Route: 042
     Dates: start: 20101003, end: 20101012
  19. CYCLOSPORINE [Concomitant]
     Dosage: 300 MG, UNK
     Route: 048
     Dates: start: 20101017, end: 20101017
  20. MYCOPHENOLATE MOFETIL [Concomitant]
     Indication: PRODUCT USED FOR UNKNOWN INDICATION
     Dosage: 1500 MG, UNK
     Route: 048
     Dates: start: 20101002
  21. DEXAMETHASONE [Concomitant]
     Indication: NAUSEA
     Dosage: 10 MG, QD
     Route: 042
     Dates: start: 20100927, end: 20101001
  22. GRANISETRON HCL [Concomitant]
     Indication: NAUSEA
     Dosage: 1 MG, QD
     Route: 042
     Dates: start: 20100927, end: 20100930
  23. LASIX [Concomitant]
     Indication: PROPHYLAXIS
     Dosage: 20 MG, BID
     Route: 042
     Dates: start: 20101015, end: 20101016
  24. PEPCID [Concomitant]
     Indication: GASTROOESOPHAGEAL REFLUX PROPHYLAXIS
     Dosage: 20 MG, UNK
     Route: 042
     Dates: start: 20101003, end: 20101016
  25. CYCLOSPORINE [Concomitant]
     Dosage: 240 MG, UNK
     Route: 042
     Dates: start: 20101011, end: 20101013
  26. CYCLOSPORINE [Concomitant]
     Dosage: 100 MG, UNK
     Route: 048
     Dates: start: 20101030, end: 20101102
  27. MICAFUNGIN [Concomitant]
     Indication: INFECTION PROPHYLAXIS
     Dosage: 50 MG, QD
     Route: 042
     Dates: start: 20100927, end: 20101017
  28. MORPHINE [Concomitant]
     Indication: PAIN
     Dosage: 2 MG, UNK
     Route: 042
     Dates: start: 20100927, end: 20100930
  29. MAGNESIUM OXIDE [Concomitant]
     Indication: SUPPLEMENTATION THERAPY
     Dosage: 835 MG, UNK
     Route: 048
     Dates: start: 20101017, end: 20101018
  30. ACYCLOVIR [Concomitant]
     Indication: ANTIVIRAL PROPHYLAXIS
     Dosage: 200 MG, BID
     Route: 048
     Dates: start: 20101003, end: 20101017
  31. BUSULFAN [Suspect]
     Indication: STEM CELL TRANSPLANT
     Dosage: 300 MG, UNK
     Route: 042
     Dates: start: 20100927, end: 20100930
  32. ALLOPURINOL [Concomitant]
     Indication: PROPHYLAXIS
     Dosage: 300 MG, TID
     Route: 048
     Dates: start: 20100924, end: 20101003
  33. PANTOPRAZOLE [Concomitant]
     Indication: PROPHYLAXIS
     Dosage: 40 MG, QD
     Route: 048
     Dates: start: 20100924, end: 20101004
  34. DOMPERIDONE [Concomitant]
     Indication: NAUSEA
     Dosage: 10 MG, QHS
     Route: 048
     Dates: start: 20101016, end: 20101018
  35. CYCLOSPORINE [Concomitant]
     Dosage: 210 MG, UNK
     Route: 042
     Dates: start: 20101014, end: 20101014
  36. CYCLOSPORINE [Concomitant]
     Dosage: 190 MG, BID
     Route: 042
     Dates: start: 20101015, end: 20101016
  37. CYCLOSPORINE [Concomitant]
     Dosage: 100 MG, UNK
     Route: 048
     Dates: start: 20101018, end: 20101018

REACTIONS (1)
  - HYPERTENSION [None]
